FAERS Safety Report 15727010 (Version 1)
Quarter: 2018Q4

REPORT INFORMATION
  Report Type: Spontaneous
  Country: US (occurrence: US)
  Receive Date: 20181217
  Receipt Date: 20181217
  Transmission Date: 20190205
  Serious: Yes (Other)
  Sender: FDA-Public Use
  Company Number: US-ROCHE-2227067

PATIENT
  Age: 76 Year
  Sex: Female
  Weight: 74.46 kg

DRUGS (8)
  1. AVASTIN [Suspect]
     Active Substance: BEVACIZUMAB
     Indication: OVARIAN CANCER RECURRENT
     Dosage: INFUSED VIA PORT
     Route: 042
     Dates: start: 201604
  2. MELATONIN [Concomitant]
     Active Substance: MELATONIN
     Indication: INSOMNIA
     Route: 065
     Dates: start: 2014
  3. CBD OIL [Concomitant]
     Active Substance: CANNABIDIOL\HERBALS
     Indication: ARTHRALGIA
     Route: 065
     Dates: start: 201808, end: 201809
  4. DEXAMETHASON [Suspect]
     Active Substance: DEXAMETHASONE
     Indication: OSTEOARTHRITIS
     Route: 065
     Dates: start: 201806
  5. DEXAMETHASON [Suspect]
     Active Substance: DEXAMETHASONE
     Route: 042
     Dates: start: 2014, end: 201806
  6. LEVOTHYROXIN [Concomitant]
     Active Substance: LEVOTHYROXINE
     Route: 065
     Dates: start: 1963
  7. VALSARTAN. [Concomitant]
     Active Substance: VALSARTAN
     Indication: HYPERTENSION
     Route: 065
  8. AMLODIPINE [Concomitant]
     Active Substance: AMLODIPINE BESYLATE
     Indication: HYPERTENSION
     Route: 065

REACTIONS (12)
  - Onychoclasis [Not Recovered/Not Resolved]
  - Abdominal pain upper [Not Recovered/Not Resolved]
  - Alopecia [Not Recovered/Not Resolved]
  - Pelvic fracture [Unknown]
  - Diarrhoea [Recovered/Resolved]
  - Nail growth abnormal [Not Recovered/Not Resolved]
  - Osteoporosis [Not Recovered/Not Resolved]
  - Stomatitis [Recovered/Resolved]
  - Epistaxis [Recovered/Resolved]
  - Osteoarthritis [Not Recovered/Not Resolved]
  - Flatulence [Not Recovered/Not Resolved]
  - Hair texture abnormal [Not Recovered/Not Resolved]

NARRATIVE: CASE EVENT DATE: 201604
